FAERS Safety Report 6104604-X (Version None)
Quarter: 2009Q1

REPORT INFORMATION
  Report Type: 
  Country: None (occurrence: None)
  Receive Date: 20090305
  Receipt Date: 20090227
  Transmission Date: 20090719
  Serious: Yes (Death, Other)
  Sender: FDA-Public Use
  Company Number: JP-MERCK-0902USA03422

PATIENT
  Age: 63 Year
  Sex: Female

DRUGS (2)
  1. DECADRON [Suspect]
     Indication: SYSTEMIC LUPUS ERYTHEMATOSUS
     Route: 048
  2. METHYLPREDNISOLONE [Concomitant]
     Indication: SYSTEMIC LUPUS ERYTHEMATOSUS
     Route: 042

REACTIONS (2)
  - ADULT T-CELL LYMPHOMA/LEUKAEMIA [None]
  - SEPSIS [None]
